FAERS Safety Report 10477455 (Version 1)
Quarter: 2014Q3

REPORT INFORMATION
  Report Type: Spontaneous
  Country: US (occurrence: US)
  Receive Date: 20140926
  Receipt Date: 20140926
  Transmission Date: 20150326
  Serious: No
  Sender: FDA-Public Use
  Company Number: US-BAYER-2014-143558

PATIENT
  Age: 82 Year
  Sex: Female

DRUGS (2)
  1. ALEVE [Suspect]
     Active Substance: NAPROXEN SODIUM
     Indication: ARTHRITIS
     Dosage: 1-2 DF, ONE TABLET IN THE AM AND TWO TABLETS
     Route: 048
  2. ADVIL [Concomitant]
     Active Substance: IBUPROFEN

REACTIONS (2)
  - Inappropriate schedule of drug administration [None]
  - Incorrect drug administration duration [None]
